FAERS Safety Report 9744977 (Version 2)
Quarter: 2015Q4

REPORT INFORMATION
  Report Type: Report from Study
  Country: US (occurrence: US)
  Receive Date: 20131211
  Receipt Date: 20151202
  Transmission Date: 20160305
  Serious: Yes (Death)
  Sender: FDA-Public Use
  Company Number: US-ROCHE-1318090

PATIENT
  Sex: Male

DRUGS (23)
  1. AVASTIN [Suspect]
     Active Substance: BEVACIZUMAB
     Indication: HEPATIC CANCER
     Route: 042
     Dates: start: 20120619, end: 20120619
  2. ERBITUX [Concomitant]
     Active Substance: CETUXIMAB
     Dosage: INFUSED OVER 1 HR
     Route: 042
     Dates: start: 20120619, end: 20120619
  3. ATROPINE. [Concomitant]
     Active Substance: ATROPINE
     Dosage: 0.4 MG /ML, INTRAVENOUS PUSH ONE TIME, ADMINISTER OVER 5MINUTES
     Route: 042
     Dates: start: 20120712, end: 20120712
  4. ERBITUX [Concomitant]
     Active Substance: CETUXIMAB
     Dosage: INFUSED OVER 1 HR
     Route: 042
     Dates: start: 20120530, end: 20120530
  5. ERBITUX [Concomitant]
     Active Substance: CETUXIMAB
     Dosage: INFUSED OVER 1 HR
     Route: 042
     Dates: start: 20120712, end: 20120712
  6. ERBITUX [Concomitant]
     Active Substance: CETUXIMAB
     Dosage: INFUSED OVER 1 HR
     Route: 042
     Dates: start: 20120813, end: 20120813
  7. NACL .9% [Concomitant]
     Route: 042
     Dates: start: 20120605, end: 20120605
  8. ATROPINE. [Concomitant]
     Active Substance: ATROPINE
     Dosage: 0.4 MG /ML, INTRAVENOUS PUSH ONE TIME, ADMINISTER OVER 5 MINUTES
     Route: 042
     Dates: start: 20120719, end: 20120719
  9. IRINOTECAN [Concomitant]
     Active Substance: IRINOTECAN
  10. NACL .9% [Concomitant]
     Route: 042
     Dates: start: 20120813, end: 20120813
  11. GEMOX (GEMCITABINE/OXALIPLATIN) [Concomitant]
  12. AVASTIN [Suspect]
     Active Substance: BEVACIZUMAB
     Route: 042
     Dates: start: 20120813, end: 20120813
  13. NACL .9% [Concomitant]
     Route: 042
     Dates: start: 20120712, end: 20120712
  14. CETUXIMAB [Concomitant]
     Active Substance: CETUXIMAB
     Route: 042
     Dates: start: 20120530
  15. AVASTIN [Suspect]
     Active Substance: BEVACIZUMAB
     Route: 042
     Dates: start: 20120712, end: 20120712
  16. ATROPINE. [Concomitant]
     Active Substance: ATROPINE
     Dosage: 0.5 MG /ML, INTRAVENOUS PUSH ONE TIME, ADMINISTER OVER 4 MINUTES
     Route: 042
     Dates: start: 20120619, end: 20120619
  17. ATROPINE. [Concomitant]
     Active Substance: ATROPINE
     Dosage: 0.4 MG /ML, INTRAVENOUS PUSH ONE TIME, ADMINISTER OVER 5 MINUTES
     Route: 042
     Dates: start: 20120820, end: 20120820
  18. AVASTIN [Suspect]
     Active Substance: BEVACIZUMAB
     Indication: PANCREATIC CARCINOMA
     Route: 042
     Dates: start: 20120605, end: 20120605
  19. ATROPINE. [Concomitant]
     Active Substance: ATROPINE
     Dosage: 0.4 MG /ML, INTRAVENOUS PUSH ONE TIME, ADMINISTER OVER 5MINUTES
     Route: 042
     Dates: start: 20120530, end: 20120530
  20. ATROPINE. [Concomitant]
     Active Substance: ATROPINE
     Dosage: 0.4 MG /ML, INTRAVENOUS PUSH ONE TIME, ADMINISTER OVER 5MINUTES
     Route: 042
     Dates: start: 20120626, end: 20120626
  21. NACL .9% [Concomitant]
     Route: 042
     Dates: start: 20120619, end: 20120619
  22. TAXOTERE [Concomitant]
     Active Substance: DOCETAXEL
  23. ATROPINE. [Concomitant]
     Active Substance: ATROPINE
     Dosage: 0.4 MG /ML, INTRAVENOUS PUSH ONE TIME, ADMINISTER OVER 5MINUTES
     Route: 042
     Dates: start: 20120605, end: 20120605

REACTIONS (2)
  - Off label use [Unknown]
  - Death [Fatal]
